FAERS Safety Report 20317961 (Version 1)
Quarter: 2022Q1

REPORT INFORMATION
  Report Type: Spontaneous
  Country: FR (occurrence: FR)
  Receive Date: 20220110
  Receipt Date: 20220110
  Transmission Date: 20220423
  Serious: Yes (Hospitalization, Other)
  Sender: FDA-Public Use
  Company Number: None

PATIENT
  Age: 90 Year
  Sex: Male

DRUGS (2)
  1. PLAVIX [Interacting]
     Active Substance: CLOPIDOGREL BISULFATE
     Indication: Atrial fibrillation
     Route: 048
     Dates: end: 20210825
  2. FLUINDIONE [Interacting]
     Active Substance: FLUINDIONE
     Indication: Cardiac valve prosthesis user
     Dosage: 1.5 DF, QD
     Route: 048
     Dates: end: 20210825

REACTIONS (3)
  - International normalised ratio increased [Recovered/Resolved]
  - Melaena [Recovered/Resolved]
  - Anaemia [Recovered/Resolved]

NARRATIVE: CASE EVENT DATE: 20210801
